FAERS Safety Report 5934164-5 (Version None)
Quarter: 2008Q4

REPORT INFORMATION
  Report Type: 
  Country: None (occurrence: None)
  Receive Date: 20081029
  Receipt Date: 20081021
  Transmission Date: 20090506
  Serious: Yes (Life-Threatening, Hospitalization, Other)
  Sender: FDA-Public Use
  Company Number: B0536208A

PATIENT
  Age: 6 Year
  Sex: Female
  Weight: 21 kg

DRUGS (6)
  1. FLUTICASONE PROPIONATE [Suspect]
     Indication: ASTHMA
     Dosage: 880MCG PER DAY
     Route: 055
     Dates: start: 20040301, end: 20060928
  2. BECLOMETHASONE DIPROPIONATE [Suspect]
     Indication: ASTHMA
     Dosage: 80MCG TWICE PER DAY
     Route: 055
     Dates: start: 20060928
  3. ZYRTEC [Concomitant]
  4. ALBUTEROL [Concomitant]
  5. SINGULAIR [Concomitant]
  6. ZANTAC [Concomitant]

REACTIONS (13)
  - ADRENAL INSUFFICIENCY [None]
  - BLOOD CORTICOTROPHIN DECREASED [None]
  - BLOOD CORTISOL DECREASED [None]
  - CUSHINGOID [None]
  - DIZZINESS [None]
  - FATIGUE [None]
  - HYPOGLYCAEMIC SEIZURE [None]
  - HYPOTHALAMO-PITUITARY DISORDER [None]
  - LETHARGY [None]
  - PNEUMONIA [None]
  - STEROID WITHDRAWAL SYNDROME [None]
  - VOMITING [None]
  - WEIGHT INCREASED [None]
